FAERS Safety Report 8919153 (Version 1)
Quarter: 2012Q4

REPORT INFORMATION
  Report Type: 
  Country: US (occurrence: US)
  Receive Date: 20121121
  Receipt Date: 20121121
  Transmission Date: 20130627
  Serious: Yes (Other)
  Sender: FDA-Public Use
  Company Number: US-JNJFOC-20121106465

PATIENT
  Sex: Male
  Weight: 106.6 kg

DRUGS (10)
  1. REMICADE [Suspect]
     Indication: RHEUMATOID ARTHRITIS
     Dosage: dose: 3 vials
     Route: 042
     Dates: start: 201210
  2. REMICADE [Suspect]
     Indication: RHEUMATOID ARTHRITIS
     Route: 042
     Dates: start: 2010, end: 201210
  3. LOSARTAN [Concomitant]
     Indication: ULCER
     Route: 048
     Dates: start: 2009
  4. PREDNISONE [Concomitant]
     Indication: ARTHRITIS
     Route: 048
     Dates: start: 2010
  5. HYDROXYCHLOROQUINE [Concomitant]
     Indication: ARTHRITIS
     Route: 048
     Dates: start: 2010
  6. NAPROXEN [Concomitant]
     Indication: ARTHRITIS
     Route: 048
  7. ASPIRIN [Concomitant]
     Indication: ANTICOAGULANT THERAPY
     Route: 048
  8. SIMVASTATIN [Concomitant]
     Indication: BLOOD PRESSURE
     Route: 048
  9. OMEPRAZOLE [Concomitant]
     Route: 048
  10. SULFAZINE [Concomitant]
     Route: 048
     Dates: start: 2010

REACTIONS (6)
  - Chills [Not Recovered/Not Resolved]
  - Nausea [Not Recovered/Not Resolved]
  - Dizziness [Not Recovered/Not Resolved]
  - Pain [Not Recovered/Not Resolved]
  - Malaise [Not Recovered/Not Resolved]
  - Infusion related reaction [Not Recovered/Not Resolved]
